FAERS Safety Report 9603331 (Version 2)
Quarter: 2013Q4

REPORT INFORMATION
  Report Type: Report from Study
  Country: US (occurrence: US)
  Receive Date: 20131007
  Receipt Date: 20131202
  Transmission Date: 20140711
  Serious: Yes (Congenital Anomaly)
  Sender: FDA-Public Use
  Company Number: US-ROCHE-1285045

PATIENT
  Age: 12 Month
  Sex: Male

DRUGS (35)
  1. OMALIZUMAB [Suspect]
     Indication: PRODUCT USED FOR UNKNOWN INDICATION
     Route: 064
  2. OMALIZUMAB [Suspect]
     Route: 064
     Dates: start: 20111205
  3. OMALIZUMAB [Suspect]
     Route: 064
     Dates: start: 20120103
  4. OMALIZUMAB [Suspect]
     Route: 064
     Dates: start: 20120116
  5. OMALIZUMAB [Suspect]
     Route: 064
     Dates: start: 20111219
  6. OMALIZUMAB [Suspect]
     Route: 064
     Dates: start: 20120131
  7. OMALIZUMAB [Suspect]
     Route: 064
     Dates: start: 20120301
  8. OMALIZUMAB [Suspect]
     Dosage: 2ND TRIMESTER
     Route: 064
     Dates: start: 20120312
  9. OMALIZUMAB [Suspect]
     Dosage: 2ND TRIMESTER
     Route: 064
     Dates: start: 20120326
  10. OMALIZUMAB [Suspect]
     Dosage: 2ND TRIMESTER
     Route: 064
     Dates: start: 20120410
  11. OMALIZUMAB [Suspect]
     Dosage: 2ND TRIMESTER
     Route: 064
     Dates: start: 20120424
  12. OMALIZUMAB [Suspect]
     Dosage: 2ND TRIMESTER
     Route: 064
     Dates: start: 20120508
  13. OMALIZUMAB [Suspect]
     Dosage: 2ND TRIMESTER
     Route: 064
     Dates: start: 20120522
  14. OMALIZUMAB [Suspect]
     Dosage: 2ND TRIMESTER
     Route: 064
     Dates: start: 20120605
  15. OMALIZUMAB [Suspect]
     Dosage: 3RD TRIMESTER
     Route: 064
     Dates: start: 20120719
  16. OMALIZUMAB [Suspect]
     Dosage: 3RD TRIMESTER
     Route: 064
     Dates: start: 20120802
  17. OMALIZUMAB [Suspect]
     Dosage: 3RD TRIMESTER
     Route: 064
     Dates: start: 20120814
  18. OMALIZUMAB [Suspect]
     Dosage: 3RD TRIMESTER
     Route: 064
     Dates: start: 20120828
  19. OMALIZUMAB [Suspect]
     Route: 064
     Dates: start: 20120828, end: 20121218
  20. OMALIZUMAB [Suspect]
     Route: 065
     Dates: start: 20130812, end: 20130824
  21. SYMBICORT [Concomitant]
  22. ZANTAC [Concomitant]
     Indication: DYSPEPSIA
  23. BUDESONIDE [Concomitant]
     Indication: ASTHMA
  24. SINGULAIR [Concomitant]
     Indication: ASTHMA
  25. PROGESTERONE [Concomitant]
     Indication: INFERTILITY
  26. ASPIRIN [Concomitant]
     Indication: INFERTILITY
  27. CLARITIN [Concomitant]
     Indication: HYPERSENSITIVITY
  28. ZYRTEC [Concomitant]
     Indication: HYPERSENSITIVITY
  29. PATANASE NASAL SPRAY [Concomitant]
     Indication: HYPERSENSITIVITY
  30. FORADIL [Concomitant]
     Indication: ASTHMA
  31. METAMUCIL [Concomitant]
  32. DOCUSATE SODIUM [Concomitant]
  33. IBUPROFEN [Concomitant]
  34. ZOLOFT [Concomitant]
     Indication: POSTPARTUM DEPRESSION
  35. PULMICORT [Concomitant]
     Indication: ASTHMA

REACTIONS (3)
  - Congenital oral malformation [Recovered/Resolved]
  - Foetal exposure during pregnancy [Unknown]
  - Exposure during breast feeding [Unknown]
